FAERS Safety Report 12270300 (Version 1)
Quarter: 2016Q2

REPORT INFORMATION
  Report Type: Spontaneous
  Country: GB (occurrence: GB)
  Receive Date: 20160415
  Receipt Date: 20160415
  Transmission Date: 20160815
  Serious: Yes (Hospitalization)
  Sender: FDA-Public Use
  Company Number: PHFR2016GB002995

PATIENT
  Age: 15 Year
  Sex: Female
  Weight: 59 kg

DRUGS (9)
  1. ONDANSETRON [Suspect]
     Active Substance: ONDANSETRON
     Indication: PROPHYLAXIS OF NAUSEA AND VOMITING
     Dosage: 4 MG, UNK
     Route: 042
     Dates: start: 20160324, end: 20160324
  2. PROPOFOL. [Concomitant]
     Active Substance: PROPOFOL
     Indication: GENERAL ANAESTHESIA
     Route: 065
     Dates: start: 20160324, end: 20160324
  3. FENTANYL. [Concomitant]
     Active Substance: FENTANYL
     Indication: GENERAL ANAESTHESIA
     Route: 065
     Dates: start: 20160324, end: 20160324
  4. ATRACURIUM [Concomitant]
     Active Substance: ATRACURIUM
     Indication: GENERAL ANAESTHESIA
     Route: 065
     Dates: start: 20160324, end: 20160324
  5. PARACETAMOL [Concomitant]
     Active Substance: ACETAMINOPHEN
     Indication: GENERAL ANAESTHESIA
     Route: 065
     Dates: start: 20160324, end: 20160324
  6. DEXAMETHASONE. [Concomitant]
     Active Substance: DEXAMETHASONE
     Indication: GENERAL ANAESTHESIA
     Route: 065
     Dates: start: 20160324, end: 20160324
  7. SEVOFLURANE. [Concomitant]
     Active Substance: SEVOFLURANE
     Indication: GENERAL ANAESTHESIA
     Route: 065
     Dates: start: 20160324, end: 20160324
  8. PARECOXIB [Concomitant]
     Active Substance: PARECOXIB
     Indication: GENERAL ANAESTHESIA
     Route: 065
     Dates: start: 20160324, end: 20160324
  9. MORPHINE [Concomitant]
     Active Substance: MORPHINE
     Indication: GENERAL ANAESTHESIA
     Route: 065
     Dates: start: 20160324, end: 20160324

REACTIONS (2)
  - Myoclonus [Recovered/Resolved]
  - Depressed level of consciousness [Recovered/Resolved]

NARRATIVE: CASE EVENT DATE: 20160324
